FAERS Safety Report 6846646-2 (Version None)
Quarter: 2010Q3

REPORT INFORMATION
  Report Type: 
  Country: None (occurrence: None)
  Receive Date: 20100715
  Receipt Date: 20070919
  Transmission Date: 20110219
  Serious: Yes (Other)
  Sender: FDA-Public Use
  Company Number: US-PFIZER INC-2007079075

PATIENT
  Sex: Male

DRUGS (1)
  1. CHANTIX [Suspect]
     Indication: SMOKING CESSATION THERAPY
     Dates: start: 20070101

REACTIONS (5)
  - ANXIETY [None]
  - DEPRESSION [None]
  - DISTURBANCE IN SOCIAL BEHAVIOUR [None]
  - EMOTIONAL DISORDER [None]
  - SUICIDAL IDEATION [None]
